FAERS Safety Report 9046288 (Version 1)
Quarter: 2013Q1

REPORT INFORMATION
  Report Type: Spontaneous
  Country: US (occurrence: None)
  Receive Date: 20130128
  Receipt Date: 20130128
  Transmission Date: 20140127
  Serious: Yes (Hospitalization)
  Sender: FDA-Public Use
  Company Number: None

PATIENT
  Age: 72 Year
  Sex: Male
  Weight: 131.3 kg

DRUGS (1)
  1. ACETAZOLAMIDE [Suspect]
     Route: 048
     Dates: start: 20121013, end: 20121018

REACTIONS (1)
  - Respiratory failure [None]
